FAERS Safety Report 11734996 (Version 1)
Quarter: 2015Q4

REPORT INFORMATION
  Report Type: Spontaneous
  Country: PE (occurrence: PE)
  Receive Date: 20151113
  Receipt Date: 20151113
  Transmission Date: 20160304
  Serious: Yes (Other)
  Sender: FDA-Public Use
  Company Number: PE-PFIZER INC-2015358001

PATIENT
  Age: 92 Year
  Sex: Male

DRUGS (1)
  1. XALATAN [Suspect]
     Active Substance: LATANOPROST
     Dosage: UNK

REACTIONS (8)
  - Glaucoma [Recovered/Resolved]
  - Cardiac disorder [Unknown]
  - Intraocular pressure test abnormal [Unknown]
  - Condition aggravated [Recovered/Resolved]
  - Dizziness [Not Recovered/Not Resolved]
  - Renal failure [Unknown]
  - Hypertension [Unknown]
  - Malaise [Unknown]
